FAERS Safety Report 18817355 (Version 3)
Quarter: 2021Q1

REPORT INFORMATION
  Report Type: Spontaneous
  Country: RO (occurrence: RO)
  Receive Date: 20210201
  Receipt Date: 20210327
  Transmission Date: 20210419
  Serious: Yes (Hospitalization, Other)
  Sender: FDA-Public Use
  Company Number: RO-ACCORD-215982

PATIENT
  Age: 63 Year
  Sex: Female

DRUGS (4)
  1. METHOTREXATE. [Suspect]
     Active Substance: METHOTREXATE
     Indication: DERMATOMYOSITIS
     Route: 058
  2. MYCOPHENOLIC ACID. [Suspect]
     Active Substance: MYCOPHENOLIC ACID
     Indication: DERMATOMYOSITIS
     Dosage: 2.5 GRAM, DAILY
  3. FOLIC ACID. [Concomitant]
     Active Substance: FOLIC ACID
     Indication: SUPPLEMENTATION THERAPY
  4. PANTOPRAZOLE [Concomitant]
     Active Substance: PANTOPRAZOLE
     Indication: ADRENOCORTICAL STEROID THERAPY
     Route: 042

REACTIONS (13)
  - Oedema peripheral [Unknown]
  - Altered state of consciousness [Unknown]
  - Hyponatraemia [Recovered/Resolved]
  - Inflammatory marker increased [Recovered/Resolved]
  - Infection [Unknown]
  - Off label use [Unknown]
  - Muscle enzyme increased [Recovered/Resolved]
  - Protein total decreased [Unknown]
  - Diarrhoea [Recovered/Resolved]
  - Muscle spasms [Recovered/Resolved]
  - Proteinuria [Recovered/Resolved]
  - Pancytopenia [Unknown]
  - Nephrotic syndrome [Recovered/Resolved]
